FAERS Safety Report 12199672 (Version 1)
Quarter: 2016Q1

REPORT INFORMATION
  Report Type: Spontaneous
  Country: GB (occurrence: GB)
  Receive Date: 20160322
  Receipt Date: 20160322
  Transmission Date: 20160526
  Serious: Yes (Hospitalization)
  Sender: FDA-Public Use
  Company Number: GB-JNJFOC-20160319304

PATIENT
  Age: 70 Year
  Sex: Female
  Weight: 98.9 kg

DRUGS (10)
  1. XARELTO [Suspect]
     Active Substance: RIVAROXABAN
     Indication: EMBOLISM VENOUS
     Route: 048
     Dates: start: 20160223, end: 20160301
  2. OMEPRAZOLE. [Concomitant]
     Active Substance: OMEPRAZOLE
     Route: 065
  3. PREGABALIN. [Concomitant]
     Active Substance: PREGABALIN
     Route: 065
  4. LEVOTHYROXINE. [Concomitant]
     Active Substance: LEVOTHYROXINE
     Route: 065
  5. MST CONTINUS [Concomitant]
     Active Substance: MORPHINE SULFATE
     Route: 065
  6. SEVREDOL [Concomitant]
     Active Substance: MORPHINE
     Route: 065
  7. METOPROLOL. [Concomitant]
     Active Substance: METOPROLOL
     Route: 065
  8. AMITRIPTYLINE [Concomitant]
     Active Substance: AMITRIPTYLINE
     Route: 065
  9. XARELTO [Suspect]
     Active Substance: RIVAROXABAN
     Indication: DEEP VEIN THROMBOSIS
     Route: 048
     Dates: start: 20160223, end: 20160301
  10. RITUXIMAB [Concomitant]
     Active Substance: RITUXIMAB
     Route: 065

REACTIONS (2)
  - Malaise [Unknown]
  - Dizziness [Recovered/Resolved]

NARRATIVE: CASE EVENT DATE: 20160226
